FAERS Safety Report 7574751-4 (Version None)
Quarter: 2011Q2

REPORT INFORMATION
  Report Type: 
  Country: None (occurrence: None)
  Receive Date: 20110627
  Receipt Date: 20110609
  Transmission Date: 20111010
  Serious: Yes (Disabling, Other)
  Sender: FDA-Public Use
  Company Number: US-BAYER-2011-050122

PATIENT
  Sex: Male

DRUGS (3)
  1. INJECTION NOS [Suspect]
     Indication: PROSTATE CANCER
  2. VIAGRA [Suspect]
     Indication: ERECTILE DYSFUNCTION
  3. VARDENAFIL HYDROCHLORIDE (ORAL) [Suspect]
     Indication: ERECTILE DYSFUNCTION
     Dosage: UNK

REACTIONS (9)
  - DIAPHRAGMATIC DISORDER [None]
  - PENIS DISORDER [None]
  - SPONTANEOUS PENILE ERECTION [None]
  - PROSTATE CANCER [None]
  - HEADACHE [None]
  - HEPATITIS B [None]
  - PAIN [None]
  - DYSPNOEA [None]
  - HEPATITIS C [None]
